FAERS Safety Report 19936389 (Version 2)
Quarter: 2021Q4

REPORT INFORMATION
  Report Type: Spontaneous
  Country: US (occurrence: US)
  Receive Date: 20211008
  Receipt Date: 20211008
  Transmission Date: 20220303
  Serious: No
  Sender: FDA-Public Use
  Company Number: US-SPROUT PHARMACEUTICALS, INC.-2021SP000200

PATIENT
  Age: 48 Year
  Sex: Female
  Weight: 76.27 kg

DRUGS (2)
  1. ADDYI [Suspect]
     Active Substance: FLIBANSERIN
     Indication: Libido decreased
     Route: 048
     Dates: start: 202107, end: 202107
  2. Biote pellets [Concomitant]
     Indication: Hormone replacement therapy
     Dosage: INSERTED INTO THE HIP EVERY 4-6 MONTHS

REACTIONS (3)
  - Dizziness [Recovered/Resolved]
  - Headache [Recovered/Resolved]
  - Product use in unapproved indication [Recovered/Resolved]

NARRATIVE: CASE EVENT DATE: 20210701
